FAERS Safety Report 8661041 (Version 3)
Quarter: 2013Q2

REPORT INFORMATION
  Report Type: Spontaneous
  Country: BR (occurrence: BR)
  Receive Date: 20120711
  Receipt Date: 20130518
  Transmission Date: 20140414
  Serious: Yes (Other)
  Sender: FDA-Public Use
  Company Number: BR-009507513-1207BRA001167

PATIENT
  Age: 34 Month
  Sex: Female

DRUGS (1)
  1. SINGULAIR [Suspect]
     Indication: ASTHMATIC CRISIS
     Dosage: UNK

REACTIONS (5)
  - Convulsion [Recovered/Resolved]
  - Convulsion [Recovered/Resolved]
  - Irritability [Unknown]
  - Swelling [Unknown]
  - Agitation [Unknown]
